FAERS Safety Report 4766336-X (Version None)
Quarter: 2005Q3

REPORT INFORMATION
  Report Type: 
  Country: None (occurrence: None)
  Receive Date: 20050912
  Receipt Date: 20050831
  Transmission Date: 20060218
  Serious: Yes (Other)
  Sender: FDA-Public Use
  Company Number: PHFR2005GB02930

PATIENT
  Sex: Male

DRUGS (4)
  1. CLOZARIL [Suspect]
     Indication: SCHIZOPHRENIA
     Dosage: 125MG/DAY
  2. CLOZARIL [Suspect]
     Dosage: 200MG/DAY
  3. CLOZARIL [Suspect]
     Dosage: 300MG/DAY
  4. SEROXAT [Concomitant]
     Dosage: 60 MG/DAY

REACTIONS (2)
  - CONDITION AGGRAVATED [None]
  - OBSESSIVE-COMPULSIVE DISORDER [None]
